FAERS Safety Report 15404092 (Version 1)
Quarter: 2018Q3

REPORT INFORMATION
  Report Type: Spontaneous
  Country: US (occurrence: US)
  Receive Date: 20180919
  Receipt Date: 20180919
  Transmission Date: 20181010
  Serious: No
  Sender: FDA-Public Use
  Company Number: US-AVADEL SPECIALTY PHARMACEUTICALS, LLC-2018AVA00281

PATIENT
  Age: 75 Year
  Sex: Male
  Weight: 90.7 kg

DRUGS (4)
  1. NOCTIVA [Suspect]
     Active Substance: DESMOPRESSIN ACETATE
     Indication: NOCTURIA
     Dosage: 0.83 MICROGRAM, 1X/DAY 30 MINUTES PRIOR TO BEDTIME (IN ONE NOSTRIL; ALTERNATING NOSTRILS)
     Route: 045
     Dates: start: 20180816, end: 20180820
  2. LUMIGAN [Concomitant]
     Active Substance: BIMATOPROST
     Dosage: UNK, 1X/DAY AT NIGHT IN EACH EYE
     Route: 047
  3. ATORVASTATIN [Concomitant]
     Active Substance: ATORVASTATIN
     Dosage: 40 MG, 1X/DAY
  4. UNSPECIFIED STEROID [Concomitant]
     Active Substance: UNSPECIFIED INGREDIENT
     Dosage: UNK
     Route: 008

REACTIONS (3)
  - Diarrhoea [Unknown]
  - Nasal discomfort [Recovered/Resolved]
  - Drug effect delayed [Recovered/Resolved]

NARRATIVE: CASE EVENT DATE: 20180816
